FAERS Safety Report 8131034-1 (Version None)
Quarter: 2012Q1

REPORT INFORMATION
  Report Type: 
  Country: None (occurrence: None)
  Receive Date: 20120208
  Receipt Date: 20120208
  Transmission Date: 20120608
  Serious: Yes (Hospitalization)
  Sender: FDA-Public Use
  Company Number: None

PATIENT
  Age: 76 Year
  Sex: Male
  Weight: 95.5 kg

DRUGS (2)
  1. ERYTHROMYCIN [Suspect]
  2. SIMVASTATIN [Suspect]
     Indication: HYPERLIPIDAEMIA
     Dosage: 80 MG EVERY DAY PO
     Route: 048
     Dates: start: 20021022, end: 20120203

REACTIONS (17)
  - GAIT DISTURBANCE [None]
  - CARDIAC MURMUR [None]
  - HYPERREFLEXIA [None]
  - UPPER MOTOR NEURONE LESION [None]
  - POLYMYOSITIS [None]
  - EXTRADURAL ABSCESS [None]
  - VIRAL INFECTION [None]
  - BLOOD CREATININE INCREASED [None]
  - POLYMYALGIA RHEUMATICA [None]
  - HEPATITIS [None]
  - DENTAL IMPLANTATION [None]
  - DRUG INTERACTION [None]
  - URINARY RETENTION [None]
  - BLOOD UREA INCREASED [None]
  - RHABDOMYOLYSIS [None]
  - DYSSTASIA [None]
  - SPINAL CORD COMPRESSION [None]
